FAERS Safety Report 7548019-6 (Version None)
Quarter: 2011Q2

REPORT INFORMATION
  Report Type: 
  Country: None (occurrence: None)
  Receive Date: 20110608
  Receipt Date: 20110525
  Transmission Date: 20111010
  Serious: No
  Sender: FDA-Public Use
  Company Number: TCI2011A02605

PATIENT
  Age: 46 Year
  Sex: Female

DRUGS (3)
  1. ROZEREM [Suspect]
     Indication: INSOMNIA
     Dosage: 8 MG (8 MG, 1 IN 1 D)
     Dates: start: 20110124, end: 20110125
  2. PERIACTIN [Concomitant]
  3. TALION (BEPOTASTINE BESILATE) [Concomitant]

REACTIONS (1)
  - PARAESTHESIA [None]
